FAERS Safety Report 7886146 (Version 3)
Quarter: 2014Q1

REPORT INFORMATION
  Report Type: Spontaneous
  Country: US (occurrence: US)
  Receive Date: 20110405
  Receipt Date: 20140317
  Transmission Date: 20141002
  Serious: Yes (Other)
  Sender: FDA-Public Use
  Company Number: US-BAYER-2011-027784

PATIENT
  Age: 31 Year
  Sex: Female

DRUGS (3)
  1. YAZ [Suspect]
     Dosage: UNK
     Dates: start: 200702, end: 200705
  2. LORTAB [Concomitant]
     Dosage: UNK
     Dates: start: 20090131
  3. ALBUTEROL [Concomitant]
     Dosage: UNK UNK, PRN
     Dates: start: 20090205

REACTIONS (9)
  - Cholecystitis chronic [None]
  - Cholecystectomy [None]
  - Injury [None]
  - General physical health deterioration [None]
  - Pain [None]
  - Anxiety [None]
  - Anhedonia [None]
  - Emotional distress [None]
  - Chest pain [None]
